FAERS Safety Report 14604293 (Version 2)
Quarter: 2018Q2

REPORT INFORMATION
  Report Type: Spontaneous
  Country: RO (occurrence: RO)
  Receive Date: 20180306
  Receipt Date: 20180425
  Transmission Date: 20180711
  Serious: Yes (Death, Other)
  Sender: FDA-Public Use
  Company Number: RO-ASTRAZENECA-2018SE26749

PATIENT
  Age: 575 Month
  Sex: Female
  Weight: 78 kg

DRUGS (1)
  1. LYNPARZA [Suspect]
     Active Substance: OLAPARIB
     Indication: OVARIAN CANCER
     Route: 048
     Dates: start: 201608, end: 201611

REACTIONS (5)
  - General physical health deterioration [Unknown]
  - Lymphangiosis carcinomatosa [Unknown]
  - Death [Fatal]
  - Malignant neoplasm progression [Unknown]
  - Pleurisy [Unknown]

NARRATIVE: CASE EVENT DATE: 201611
